FAERS Safety Report 7007828-2 (Version None)
Quarter: 2010Q3

REPORT INFORMATION
  Report Type: 
  Country: None (occurrence: None)
  Receive Date: 20100922
  Receipt Date: 20100916
  Transmission Date: 20110219
  Serious: Yes (Disabling)
  Sender: FDA-Public Use
  Company Number: CA-MERCK-1009USA03499

PATIENT
  Age: 74 Year
  Sex: Female
  Weight: 82 kg

DRUGS (5)
  1. MEVACOR [Suspect]
     Route: 048
  2. COUMADIN [Concomitant]
     Route: 048
  3. CRESTOR [Suspect]
     Route: 048
  4. HYZAAR [Concomitant]
     Route: 048
  5. LOVAZA [Concomitant]
     Route: 065

REACTIONS (5)
  - FATIGUE [None]
  - MYALGIA [None]
  - PAIN [None]
  - PAIN IN EXTREMITY [None]
  - PARAESTHESIA [None]
